FAERS Safety Report 4971195-6 (Version None)
Quarter: 2006Q1

REPORT INFORMATION
  Report Type: 
  Country: None (occurrence: None)
  Receive Date: 20060216
  Receipt Date: 20050104
  Transmission Date: 20060701
  Serious: Yes (Other)
  Sender: FDA-Public Use
  Company Number: 2003IM001243

PATIENT
  Age: 59 Year
  Sex: Female
  Weight: 63.5036 kg

DRUGS (11)
  1. INTERFERON GAMMA-1B [Suspect]
     Indication: OVARIAN CANCER
     Dosage: 100 UG, TIW, SUBCUTANEOUS
     Route: 058
     Dates: start: 20031027, end: 20031128
  2. NAPROSYN [Concomitant]
  3. ATIVAN [Concomitant]
  4. PERCOCET [Concomitant]
  5. CARBOPLATIN [Concomitant]
  6. PACLITAXEL [Concomitant]
  7. HYDROXYCHLOROQUINE SULFATE [Concomitant]
  8. LORAZEPAM [Concomitant]
  9. METOCLOPRAMIDE [Concomitant]
  10. COMPRO [Concomitant]
  11. HYDROCODONE [Concomitant]

REACTIONS (1)
  - ASTHENIA [None]
